FAERS Safety Report 7415838-6 (Version None)
Quarter: 2011Q2

REPORT INFORMATION
  Report Type: 
  Country: None (occurrence: None)
  Receive Date: 20110414
  Receipt Date: 20110408
  Transmission Date: 20111010
  Serious: Yes (Hospitalization, Disabling, Other)
  Sender: FDA-Public Use
  Company Number: GB-TEVA-265068ISR

PATIENT
  Age: 35 Year
  Sex: Female

DRUGS (1)
  1. METRONIDAZOLE [Suspect]
     Indication: TOOTH INFECTION
     Dosage: 600 MILLIGRAM;
     Dates: start: 20101207

REACTIONS (5)
  - VERTIGO [None]
  - VESTIBULAR DISORDER [None]
  - CEREBELLAR SYNDROME [None]
  - GAIT DISTURBANCE [None]
  - ATAXIA [None]
